FAERS Safety Report 20818648 (Version 1)
Quarter: 2022Q2

REPORT INFORMATION
  Report Type: Spontaneous
  Country: US (occurrence: US)
  Receive Date: 20220512
  Receipt Date: 20220512
  Transmission Date: 20220721
  Serious: Yes (Death)
  Sender: FDA-Public Use
  Company Number: US-CHIESI-2022CHF02211

PATIENT
  Sex: Female

DRUGS (2)
  1. KENGREAL [Suspect]
     Active Substance: CANGRELOR
     Indication: Cerebrovascular accident
     Dosage: 5 MICROGRAM/KILOGRAM, (1X)
     Route: 040
     Dates: start: 202204, end: 202204
  2. KENGREAL [Suspect]
     Active Substance: CANGRELOR
     Indication: Off label use
     Dosage: UNK
     Route: 042
     Dates: start: 202204, end: 202204

REACTIONS (4)
  - Haemorrhage [Fatal]
  - Off label use [Recovered/Resolved]
  - Off label use [Recovered/Resolved]
  - Off label use [Recovered/Resolved]

NARRATIVE: CASE EVENT DATE: 20220401
